FAERS Safety Report 7943165-7 (Version None)
Quarter: 2011Q4

REPORT INFORMATION
  Report Type: 
  Country: None (occurrence: None)
  Receive Date: 20111128
  Receipt Date: 20111116
  Transmission Date: 20120403
  Serious: Yes (Other)
  Sender: FDA-Public Use
  Company Number: PHEH2011US009575

PATIENT
  Age: 45 Year
  Sex: Female

DRUGS (1)
  1. VOLTAREN [Suspect]
     Route: 048
     Dates: start: 19900101

REACTIONS (3)
  - GASTROOESOPHAGEAL REFLUX DISEASE [None]
  - GASTRIC ULCER [None]
  - ABDOMINAL PAIN UPPER [None]
